FAERS Safety Report 6060536-7 (Version None)
Quarter: 2009Q1

REPORT INFORMATION
  Report Type: 
  Country: None (occurrence: None)
  Receive Date: 20090202
  Receipt Date: 20090127
  Transmission Date: 20090719
  Serious: Yes (Hospitalization)
  Sender: FDA-Public Use
  Company Number: FR-JNJFOC-20090106443

PATIENT
  Sex: Female

DRUGS (4)
  1. GYNO-PEVARYL LP [Suspect]
     Indication: VULVOVAGINAL MYCOTIC INFECTION
     Route: 067
  2. PREVISCAN [Interacting]
     Route: 048
  3. PREVISCAN [Interacting]
     Indication: DRUG USE FOR UNKNOWN INDICATION
     Dosage: 20 MG IN THE MORING AND 5 MG IN THE EVENING
     Route: 048
  4. FUNGIZONE [Concomitant]
     Indication: ORAL FUNGAL INFECTION
     Route: 048

REACTIONS (2)
  - DRUG INTERACTION [None]
  - HAEMATURIA [None]
